FAERS Safety Report 13833215 (Version 1)
Quarter: 2017Q3

REPORT INFORMATION
  Report Type: Spontaneous
  Country: US (occurrence: US)
  Receive Date: 20170803
  Receipt Date: 20170803
  Transmission Date: 20171127
  Serious: Yes (Other)
  Sender: FDA-Public Use
  Company Number: None

PATIENT
  Age: 56 Year
  Sex: Male
  Weight: 85.5 kg

DRUGS (1)
  1. HYDROCHLOROTHIAZIDE/LISINOPRIL [Suspect]
     Active Substance: HYDROCHLOROTHIAZIDE\LISINOPRIL
     Indication: HYPOTHYROIDISM
     Route: 048
     Dates: start: 20170227, end: 20170503

REACTIONS (10)
  - Impaired driving ability [None]
  - Product label on wrong product [None]
  - Product physical issue [None]
  - Muscle spasms [None]
  - Malaise [None]
  - Memory impairment [None]
  - Wrong drug administered [None]
  - Fatigue [None]
  - Mental impairment [None]
  - Dizziness [None]

NARRATIVE: CASE EVENT DATE: 20170503
